FAERS Safety Report 8956594 (Version 1)
Quarter: 2012Q4

REPORT INFORMATION
  Report Type: 
  Country: HU (occurrence: HU)
  Receive Date: 20121210
  Receipt Date: 20121210
  Transmission Date: 20130627
  Serious: Yes (Hospitalization, Other)
  Sender: FDA-Public Use
  Company Number: HU-009507513-1212HUN001176

PATIENT
  Age: 49 Year
  Sex: Female

DRUGS (3)
  1. ZOELY [Suspect]
     Indication: CONTRACEPTION
     Dosage: 1 DF, qd
     Route: 048
     Dates: start: 20120619, end: 20120801
  2. FOSTER (BECLOMETHASONE DIPROPIONATE (+) FORMOTEROL FUMARATE) [Concomitant]
  3. CETRIZIN (CEFATRIZINE) [Concomitant]

REACTIONS (1)
  - Deep vein thrombosis [Recovering/Resolving]
